FAERS Safety Report 15937638 (Version 2)
Quarter: 2019Q2

REPORT INFORMATION
  Report Type: Spontaneous
  Country: US (occurrence: US)
  Receive Date: 20190208
  Receipt Date: 20190411
  Transmission Date: 20190711
  Serious: No
  Sender: FDA-Public Use
  Company Number: US-GLAXOSMITHKLINE-US2019019187

PATIENT
  Sex: Female

DRUGS (1)
  1. NUCALA [Suspect]
     Active Substance: MEPOLIZUMAB
     Indication: PRODUCT USED FOR UNKNOWN INDICATION
     Dosage: 100 MG, CYC
     Route: 058
     Dates: start: 20180718, end: 20181128

REACTIONS (5)
  - Eye pain [Unknown]
  - Back pain [Unknown]
  - Tinnitus [Unknown]
  - Nerve injury [Unknown]
  - Feeling hot [Unknown]

NARRATIVE: CASE EVENT DATE: 2018
